FAERS Safety Report 23945450 (Version 1)
Quarter: 2024Q2

REPORT INFORMATION
  Report Type: Spontaneous
  Country: US (occurrence: None)
  Receive Date: 20240605
  Receipt Date: 20240605
  Transmission Date: 20240715
  Serious: No
  Sender: FDA-Public Use
  Company Number: None

PATIENT
  Sex: 0

DRUGS (1)
  1. DYANAVEL XR [Suspect]
     Active Substance: AMPHETAMINE

REACTIONS (2)
  - Decreased appetite [None]
  - Irritability [None]
